FAERS Safety Report 13120993 (Version 1)
Quarter: 2017Q1

REPORT INFORMATION
  Report Type: Spontaneous
  Country: US (occurrence: US)
  Receive Date: 20170117
  Receipt Date: 20170117
  Transmission Date: 20170428
  Serious: Yes (Other)
  Sender: FDA-Public Use
  Company Number: US-BAYER-2016-226075

PATIENT
  Sex: Female

DRUGS (25)
  1. LOTAN [LORATIDINE] [Concomitant]
  2. PHILLIP^S COLON HEALTH [Concomitant]
  3. TYLENOL [Concomitant]
     Active Substance: ACETAMINOPHEN
  4. ASPIRIN. [Suspect]
     Active Substance: ASPIRIN
     Indication: PRODUCT USED FOR UNKNOWN INDICATION
     Dosage: UNK
  5. AROMASIN [Suspect]
     Active Substance: EXEMESTANE
  6. APIXABAN [Suspect]
     Active Substance: APIXABAN
  7. CALCIUM [Concomitant]
     Active Substance: CALCIUM
  8. FUROSEMIDE. [Concomitant]
     Active Substance: FUROSEMIDE
  9. BACTRIM DS [Concomitant]
     Active Substance: SULFAMETHOXAZOLE\TRIMETHOPRIM
  10. CARVEDIOL [Concomitant]
     Active Substance: CARVEDILOL
  11. OXYCONTIN [Concomitant]
     Active Substance: OXYCODONE HYDROCHLORIDE
  12. NYSTATIN. [Concomitant]
     Active Substance: NYSTATIN
  13. OMEPRAZOLE. [Concomitant]
     Active Substance: OMEPRAZOLE
  14. FLUCONAZOLE. [Concomitant]
     Active Substance: FLUCONAZOLE
  15. PALBOCICLIB [Suspect]
     Active Substance: PALBOCICLIB
  16. METHIMAZOLE. [Concomitant]
     Active Substance: METHIMAZOLE
  17. VITAMIN D3 [Concomitant]
     Active Substance: CHOLECALCIFEROL
  18. AMBIEN [Concomitant]
     Active Substance: ZOLPIDEM TARTRATE
  19. CAFFEINE. [Concomitant]
     Active Substance: CAFFEINE
  20. ACYCLOVIR [ACICLOVIR] [Concomitant]
     Active Substance: ACYCLOVIR
  21. CENTRUM [Concomitant]
     Active Substance: VITAMINS
  22. DICYCLOMINE [Concomitant]
     Active Substance: DICYCLOMINE HYDROCHLORIDE
  23. PREDNISONE. [Concomitant]
     Active Substance: PREDNISONE
  24. PROPRANOLOL [Concomitant]
     Active Substance: PROPRANOLOL HYDROCHLORIDE
  25. ALBUTEROL. [Concomitant]
     Active Substance: ALBUTEROL

REACTIONS (2)
  - Respiratory failure [Recovered/Resolved]
  - Drug hypersensitivity [Recovered/Resolved]
